FAERS Safety Report 7827018-0 (Version None)
Quarter: 2011Q4

REPORT INFORMATION
  Report Type: 
  Country: None (occurrence: None)
  Receive Date: 20111019
  Receipt Date: 20111019
  Transmission Date: 20120403
  Serious: Yes (Disabling)
  Sender: FDA-Public Use
  Company Number: None

PATIENT
  Age: 72 Year
  Sex: Female
  Weight: 90.7194 kg

DRUGS (1)
  1. CIPROFLOXACIN [Suspect]
     Indication: KIDNEY INFECTION
     Dosage: CIPRO 500MGM X 10 DAYS P.O. (4/22 10 DAYS)
     Route: 048

REACTIONS (7)
  - DEEP VEIN THROMBOSIS [None]
  - ARTHRALGIA [None]
  - MYALGIA [None]
  - TENDONITIS [None]
  - COGNITIVE DISORDER [None]
  - OEDEMA PERIPHERAL [None]
  - SKIN EXFOLIATION [None]
